FAERS Safety Report 23046059 (Version 1)
Quarter: 2023Q4

REPORT INFORMATION
  Report Type: Spontaneous
  Country: RO (occurrence: RO)
  Receive Date: 20231009
  Receipt Date: 20231009
  Transmission Date: 20240110
  Serious: Yes (Other)
  Sender: FDA-Public Use
  Company Number: RO-BRISTOL-MYERS SQUIBB COMPANY-2023-140870

PATIENT
  Age: 55 Year
  Sex: Female
  Weight: 118 kg

DRUGS (5)
  1. NIVOLUMAB [Suspect]
     Active Substance: NIVOLUMAB
     Indication: Malignant melanoma
     Dosage: DOSE : NIVO 1 MG/KG,+ IPI 3 MG/KG;     FREQ : EVERY 3 WEEKS
     Dates: start: 202306
  2. NIVOLUMAB [Suspect]
     Active Substance: NIVOLUMAB
  3. NIVOLUMAB [Suspect]
     Active Substance: NIVOLUMAB
  4. IPILIMUMAB [Suspect]
     Active Substance: IPILIMUMAB
     Indication: Malignant melanoma
     Dates: start: 202306
  5. IPILIMUMAB [Suspect]
     Active Substance: IPILIMUMAB

REACTIONS (7)
  - Asthenia [Recovering/Resolving]
  - Decreased appetite [Recovered/Resolved]
  - Escherichia urinary tract infection [Unknown]
  - Hyperglycaemia [Unknown]
  - Anaemia [Recovering/Resolving]
  - Chronic kidney disease [Unknown]
  - Off label use [Unknown]
